FAERS Safety Report 8976039 (Version 1)
Quarter: 2012Q4

REPORT INFORMATION
  Report Type: 
  Country: CN (occurrence: CN)
  Receive Date: 20121219
  Receipt Date: 20121219
  Transmission Date: 20130627
  Serious: Yes (Other)
  Sender: FDA-Public Use
  Company Number: CN-ROCHE-1171312

PATIENT
  Sex: Male

DRUGS (1)
  1. XELODA [Suspect]
     Indication: GASTROINTESTINAL CARCINOMA
     Route: 065

REACTIONS (1)
  - Haemangioma of liver [Not Recovered/Not Resolved]
